FAERS Safety Report 6340759-X (Version None)
Quarter: 2009Q3

REPORT INFORMATION
  Report Type: 
  Country: None (occurrence: None)
  Receive Date: 20090904
  Receipt Date: 20090824
  Transmission Date: 20100115
  Serious: Yes (Hospitalization)
  Sender: FDA-Public Use
  Company Number: IL-NOVOPROD-290954

PATIENT
  Age: 11 Year
  Sex: Male

DRUGS (2)
  1. NORDITROPIN [Suspect]
     Indication: GROWTH HORMONE DEFICIENCY
     Dosage: .03 MG/KG, QD
     Dates: start: 20031201, end: 20090401
  2. DECAPEPTYL                         /00486501/ [Concomitant]

REACTIONS (1)
  - EWING'S SARCOMA [None]
